FAERS Safety Report 5682571-0 (Version None)
Quarter: 2008Q1

REPORT INFORMATION
  Report Type: 
  Country: None (occurrence: None)
  Receive Date: 20080327
  Receipt Date: 20080104
  Transmission Date: 20080703
  Serious: Yes (Other)
  Sender: FDA-Public Use
  Company Number: US-BRISTOL-MYERS SQUIBB COMPANY-14018832

PATIENT
  Age: 19 Year
  Sex: Female

DRUGS (3)
  1. ORENCIA [Suspect]
     Indication: JUVENILE ARTHRITIS
     Dosage: TOTAL INFUSIONS 3.
     Route: 042
     Dates: start: 20071022, end: 20071203
  2. PLAQUENIL [Concomitant]
  3. CONTRACEPTIVE [Concomitant]
     Indication: CONTRACEPTION
     Route: 048

REACTIONS (2)
  - THROAT TIGHTNESS [None]
  - URTICARIA [None]
